FAERS Safety Report 5230917-X (Version None)
Quarter: 2007Q1

REPORT INFORMATION
  Report Type: 
  Country: None (occurrence: None)
  Receive Date: 20070206
  Receipt Date: 20070131
  Transmission Date: 20070707
  Serious: Yes (Other)
  Sender: FDA-Public Use
  Company Number: GB-GLAXOSMITHKLINE-B0360068A

PATIENT
  Sex: Female

DRUGS (2)
  1. PAROXETINE HYDROCHLORIDE [Suspect]
     Indication: POST-TRAUMATIC STRESS DISORDER
     Dosage: 20MG PER DAY
     Route: 065
     Dates: start: 19990925
  2. ORAL CONTRACEPTIVE PILL [Concomitant]

REACTIONS (4)
  - BALANCE DISORDER [None]
  - DISTURBANCE IN ATTENTION [None]
  - DIZZINESS [None]
  - DRUG WITHDRAWAL SYNDROME [None]
